FAERS Safety Report 4684873-3 (Version None)
Quarter: 2005Q2

REPORT INFORMATION
  Report Type: 
  Country: None (occurrence: None)
  Receive Date: 20050327
  Receipt Date: 20050317
  Transmission Date: 20051028
  Serious: No
  Sender: FDA-Public Use
  Company Number: PHEH2005US03243

PATIENT
  Age: 72 Year
  Sex: Female

DRUGS (2)
  1. ZELNORM [Suspect]
     Indication: CONSTIPATION
     Dosage: 6 MG, ONCE/SINGLE
     Dates: start: 20050312, end: 20050312
  2. TYLENOL [Concomitant]

REACTIONS (2)
  - ASTHENIA [None]
  - SOMNOLENCE [None]
